FAERS Safety Report 5016506-0 (Version None)
Quarter: 2006Q2

REPORT INFORMATION
  Report Type: 
  Country: None (occurrence: None)
  Receive Date: 20060602
  Receipt Date: 20060524
  Transmission Date: 20061013
  Serious: Yes (Disabling)
  Sender: FDA-Public Use
  Company Number: FR-AVENTIS-200611958FR

PATIENT
  Sex: Male

DRUGS (1)
  1. KETEK [Suspect]
     Route: 048
     Dates: start: 20060522, end: 20060522

REACTIONS (1)
  - VISUAL ACUITY REDUCED [None]
